FAERS Safety Report 23302487 (Version 1)
Quarter: 2023Q4

REPORT INFORMATION
  Report Type: Spontaneous
  Country: US (occurrence: US)
  Receive Date: 20231215
  Receipt Date: 20231215
  Transmission Date: 20240110
  Serious: Yes (Other)
  Sender: FDA-Public Use
  Company Number: US-MYLANLABS-2023M1129896

PATIENT
  Sex: Female

DRUGS (1)
  1. POTASSIUM CHLORIDE [Suspect]
     Active Substance: POTASSIUM CHLORIDE
     Indication: Blood potassium decreased
     Dosage: 750 MILLIGRAM, QID
     Route: 048
     Dates: end: 20231114

REACTIONS (3)
  - Arrhythmia [Unknown]
  - Product residue present [Unknown]
  - Product quality issue [Unknown]
